FAERS Safety Report 7990961-6 (Version None)
Quarter: 2011Q4

REPORT INFORMATION
  Report Type: 
  Country: None (occurrence: None)
  Receive Date: 20111219
  Receipt Date: 20111216
  Transmission Date: 20120403
  Serious: Yes (Hospitalization)
  Sender: FDA-Public Use
  Company Number: CO-ROCHE-1022718

PATIENT
  Sex: Female

DRUGS (1)
  1. CAPECITABINE [Suspect]
     Indication: BREAST CANCER
     Route: 048
     Dates: start: 20110907, end: 20111015

REACTIONS (4)
  - XERODERMA [None]
  - HYPONATRAEMIA [None]
  - HYPOKALAEMIA [None]
  - APHTHOUS STOMATITIS [None]
